FAERS Safety Report 13263137 (Version 1)
Quarter: 2017Q1

REPORT INFORMATION
  Report Type: Spontaneous
  Country: IT (occurrence: IT)
  Receive Date: 20170223
  Receipt Date: 20170223
  Transmission Date: 20170428
  Serious: Yes (Death, Other)
  Sender: FDA-Public Use
  Company Number: IT-SUN PHARMACEUTICAL INDUSTRIES LTD-2016R1-110404

PATIENT
  Age: 48 Year
  Sex: Female

DRUGS (4)
  1. MYCOPHENOLATE [Suspect]
     Active Substance: MYCOPHENOLIC ACID
     Indication: UNDIFFERENTIATED CONNECTIVE TISSUE DISEASE
     Dosage: 1000 MG, BID
     Route: 065
  2. PREDNISONE. [Suspect]
     Active Substance: PREDNISONE
     Indication: POLYMYOSITIS
  3. PREDNISONE. [Suspect]
     Active Substance: PREDNISONE
     Indication: UNDIFFERENTIATED CONNECTIVE TISSUE DISEASE
     Dosage: 50 MG/DAY
     Route: 065
  4. MYCOPHENOLATE [Suspect]
     Active Substance: MYCOPHENOLIC ACID
     Indication: POLYMYOSITIS

REACTIONS (2)
  - Cerebral toxoplasmosis [Not Recovered/Not Resolved]
  - Multiple organ dysfunction syndrome [Fatal]
